FAERS Safety Report 16635700 (Version 5)
Quarter: 2021Q1

REPORT INFORMATION
  Report Type: Report from Study
  Country: US (occurrence: US)
  Receive Date: 20190726
  Receipt Date: 20210208
  Transmission Date: 20210419
  Serious: Yes (Death, Life-Threatening, Hospitalization, Other)
  Sender: FDA-Public Use
  Company Number: US-ROCHE-2358675

PATIENT
  Age: 63 Year
  Sex: Male
  Weight: 72.8 kg

DRUGS (6)
  1. PEMETREXED. [Suspect]
     Active Substance: PEMETREXED
     Indication: PLEURAL MESOTHELIOMA MALIGNANT
     Dosage: LAST DOSE: 05/JUN/2019, 13/MAY/2019, 22/APR/2019
     Route: 042
     Dates: start: 20190325, end: 20190605
  2. ATEZOLIZUMAB. [Suspect]
     Active Substance: ATEZOLIZUMAB
     Indication: MESOTHELIOMA MALIGNANT
  3. CISPLATIN. [Suspect]
     Active Substance: CISPLATIN
     Indication: PLEURAL MESOTHELIOMA MALIGNANT
     Dosage: LAST DOSE: 05/JUN/2019, 13/MAY/2019, 22/APR/2019
     Route: 042
     Dates: start: 20190325, end: 20190605
  4. ATEZOLIZUMAB. [Suspect]
     Active Substance: ATEZOLIZUMAB
     Indication: PLEURAL MESOTHELIOMA MALIGNANT
     Dosage: LAST DOSE: 05/JUN/2019, 13/MAY/2019, 22/APR/2019
     Route: 042
     Dates: start: 20190325
  5. CISPLATIN. [Suspect]
     Active Substance: CISPLATIN
     Indication: MESOTHELIOMA MALIGNANT
  6. PEMETREXED. [Suspect]
     Active Substance: PEMETREXED
     Indication: MESOTHELIOMA MALIGNANT

REACTIONS (14)
  - Pneumonia [Unknown]
  - Hyponatraemia [Unknown]
  - Pneumonia [Unknown]
  - Sepsis [Unknown]
  - Sepsis [Fatal]
  - Renal failure [Unknown]
  - Pneumonitis [Unknown]
  - Pneumonia [Recovering/Resolving]
  - Renal failure [Unknown]
  - Dyspnoea [Unknown]
  - Respiratory failure [Unknown]
  - Respiratory failure [Unknown]
  - Pneumonitis [Unknown]
  - Pneumonia [Fatal]

NARRATIVE: CASE EVENT DATE: 20190529
